FAERS Safety Report 17305802 (Version 1)
Quarter: 2020Q1

REPORT INFORMATION
  Report Type: Report from Study
  Country: US (occurrence: US)
  Receive Date: 20200123
  Receipt Date: 20200123
  Transmission Date: 20200409
  Serious: Yes (Other)
  Sender: FDA-Public Use
  Company Number: US-ROCHE-1982072

PATIENT
  Sex: Male
  Weight: 99.88 kg

DRUGS (9)
  1. CORTEF [Concomitant]
     Active Substance: HYDROCORTISONE
     Route: 065
  2. NORVASC [Concomitant]
     Active Substance: AMLODIPINE BESYLATE
     Route: 048
  3. LEVOTHYROXINE. [Concomitant]
     Active Substance: LEVOTHYROXINE
     Route: 065
  4. ACTONEL [Concomitant]
     Active Substance: RISEDRONATE SODIUM
     Route: 065
  5. LEVOXYL [Concomitant]
     Active Substance: LEVOTHYROXINE SODIUM
     Route: 048
  6. CORTEF [Concomitant]
     Active Substance: HYDROCORTISONE
     Route: 065
  7. NUTROPIN AQ [Suspect]
     Active Substance: SOMATROPIN
     Indication: GROWTH HORMONE DEFICIENCY
     Route: 058
     Dates: start: 2005
  8. ANDROGEL [Concomitant]
     Active Substance: TESTOSTERONE
     Dosage: APPLY 1 PUMP DAILY
     Route: 065
  9. NUTROPIN AQ [Suspect]
     Active Substance: SOMATROPIN
     Indication: PITUITARY TUMOUR BENIGN

REACTIONS (21)
  - Depression [Unknown]
  - Weight decreased [Unknown]
  - Osteoporosis [Unknown]
  - Fatigue [Unknown]
  - Glomerular filtration rate decreased [Unknown]
  - Onychomycosis [Unknown]
  - Hyperhidrosis [Unknown]
  - Mean cell volume decreased [Unknown]
  - High density lipoprotein decreased [Unknown]
  - Weight increased [Unknown]
  - Blood testosterone decreased [Unknown]
  - Blood alkaline phosphatase increased [Unknown]
  - Blood creatinine increased [Unknown]
  - Red blood cell count increased [Unknown]
  - Blood cholesterol increased [Unknown]
  - Osteitis deformans [Unknown]
  - Depressed mood [Unknown]
  - Asthenia [Unknown]
  - Low density lipoprotein increased [Unknown]
  - Irritability [Unknown]
  - Headache [Unknown]
